FAERS Safety Report 11953675 (Version 1)
Quarter: 2016Q1

REPORT INFORMATION
  Report Type: Spontaneous
  Country: ES (occurrence: ES)
  Receive Date: 20160126
  Receipt Date: 20160126
  Transmission Date: 20160526
  Serious: Yes (Other)
  Sender: FDA-Public Use
  Company Number: ES-IMPAX LABORATORIES, INC-2016-IPXL-00071

PATIENT
  Age: 82 Year
  Sex: Female

DRUGS (7)
  1. RISEDRONATE [Suspect]
     Active Substance: RISEDRONATE SODIUM
     Indication: POLYMYALGIA RHEUMATICA
     Dosage: UNK
     Route: 048
  2. ALENDRONATE [Suspect]
     Active Substance: ALENDRONATE SODIUM
     Indication: POLYMYALGIA RHEUMATICA
     Dosage: UNK
     Route: 048
  3. ETIDRONATE [Suspect]
     Active Substance: ETIDRONATE DISODIUM
     Indication: POLYMYALGIA RHEUMATICA
     Dosage: UNK
     Route: 048
  4. IBANDRONATE [Suspect]
     Active Substance: IBANDRONATE SODIUM
     Indication: POLYMYALGIA RHEUMATICA
     Dosage: UNK
     Route: 048
  5. DENOSUMAB [Suspect]
     Active Substance: DENOSUMAB
     Indication: POLYMYALGIA RHEUMATICA
     Dosage: UNK
     Route: 065
  6. PREDNISONE. [Concomitant]
     Active Substance: PREDNISONE
     Indication: POLYMYALGIA RHEUMATICA
     Dosage: 5-10 MG/DAY
     Route: 048
  7. OMEPRAZOLE DELAYED RELEASE [Suspect]
     Active Substance: OMEPRAZOLE
     Indication: POLYMYALGIA RHEUMATICA
     Dosage: UNK
     Route: 065

REACTIONS (1)
  - Atypical femur fracture [Unknown]
